FAERS Safety Report 20683218 (Version 3)
Quarter: 2022Q2

REPORT INFORMATION
  Report Type: Spontaneous
  Country: EG (occurrence: EG)
  Receive Date: 20220407
  Receipt Date: 20220525
  Transmission Date: 20220721
  Serious: Yes (Death, Other)
  Sender: FDA-Public Use
  Company Number: EG-SA-SAC20220124000264

PATIENT
  Age: 13 Month
  Sex: Female
  Weight: 10 kg

DRUGS (2)
  1. CEREZYME [Suspect]
     Active Substance: IMIGLUCERASE
     Indication: Gaucher^s disease type III
     Dosage: 60 IU/KG, QOW
     Route: 041
     Dates: start: 20200920, end: 20200920
  2. CEREZYME [Suspect]
     Active Substance: IMIGLUCERASE
     Dosage: 60 IU/KG, QOW
     Route: 041
     Dates: start: 20200920, end: 20220320

REACTIONS (6)
  - Pulmonary haemorrhage [Fatal]
  - Oedema [Unknown]
  - Drug specific antibody present [Unknown]
  - Rash [Unknown]
  - Urticaria [Unknown]
  - Drug ineffective [Unknown]

NARRATIVE: CASE EVENT DATE: 20200920
